FAERS Safety Report 10006500 (Version 2)
Quarter: 2014Q1

REPORT INFORMATION
  Report Type: Report from Study
  Country: JP (occurrence: JP)
  Receive Date: 20140313
  Receipt Date: 20140313
  Transmission Date: 20141002
  Serious: Yes (Death, Hospitalization)
  Sender: FDA-Public Use
  Company Number: JP-SA-THYM-1004081

PATIENT
  Age: 41 Year
  Sex: Female
  Weight: 45 kg

DRUGS (20)
  1. THYMOGLOBULINE [Suspect]
     Indication: BONE MARROW CONDITIONING REGIMEN
     Dosage: 150 MG, QD
     Route: 065
     Dates: start: 20120907, end: 20120910
  2. FLUDARABINE PHOSPHATE [Suspect]
     Indication: BONE MARROW CONDITIONING REGIMEN
     Dosage: UNK
     Route: 065
     Dates: start: 20120907, end: 20120910
  3. CYCLOPHOSPHAMIDE [Suspect]
     Indication: BONE MARROW CONDITIONING REGIMEN
     Dosage: UNK
     Route: 065
     Dates: start: 20120907, end: 20120910
  4. URSO [Concomitant]
     Indication: PROPHYLAXIS
     Dosage: UNK
     Dates: start: 20120906, end: 20121114
  5. ZOVIRAX [Concomitant]
     Indication: ANTIVIRAL PROPHYLAXIS
     Dosage: UNK
     Dates: start: 20120906, end: 20121124
  6. DIFLUCAN [Concomitant]
     Indication: ANTIFUNGAL PROPHYLAXIS
     Dosage: UNK
     Dates: start: 20120906, end: 20120921
  7. CRAVIT [Concomitant]
     Indication: ANTIBIOTIC PROPHYLAXIS
     Dosage: UNK
     Dates: start: 20120906, end: 20120908
  8. MUCOSTA [Concomitant]
     Indication: PROPHYLAXIS
     Dosage: UNK
     Dates: start: 20120906, end: 20121114
  9. EMEND [Concomitant]
     Indication: PROPHYLAXIS
     Dosage: UNK
     Dates: start: 20120907, end: 20120909
  10. CALONAL [Concomitant]
     Indication: PROPHYLAXIS
     Dosage: UNK
     Dates: start: 20120907, end: 20120907
  11. POLARAMINE [Concomitant]
     Indication: PROPHYLAXIS
     Dosage: UNK
     Dates: start: 20120907, end: 20120907
  12. VFEND [Concomitant]
     Indication: ANTIFUNGAL PROPHYLAXIS
     Dosage: UNK
     Dates: start: 20121004, end: 20121108
  13. BAKTAR [Concomitant]
     Indication: ANTIFUNGAL PROPHYLAXIS
     Dosage: UNK
     Dates: start: 20121006, end: 20121124
  14. KYTRIL [Concomitant]
     Indication: PROPHYLAXIS
     Dosage: UNK
     Dates: start: 20120907, end: 20120910
  15. SOLU-MEDROL [Concomitant]
     Indication: PROPHYLAXIS
     Dosage: UNK
     Dates: start: 20120907, end: 20120910
  16. UROMITEXAN [Concomitant]
     Indication: PROPHYLAXIS
     Dosage: UNK
     Route: 065
     Dates: start: 20120907, end: 20120910
  17. PROGRAF [Concomitant]
     Indication: PROPHYLAXIS AGAINST GRAFT VERSUS HOST DISEASE
     Dosage: UNK
     Dates: start: 20120912, end: 20121117
  18. METHOTREXATE [Concomitant]
     Indication: PROPHYLAXIS AGAINST GRAFT VERSUS HOST DISEASE
     Dosage: UNK
  19. GRAN [Concomitant]
     Indication: NEUTROPHIL COUNT INCREASED
     Dosage: UNK
     Dates: start: 20120920, end: 20121008
  20. FUNGUARD [Concomitant]
     Indication: ANTIFUNGAL PROPHYLAXIS
     Dosage: UNK
     Dates: start: 20010922, end: 20121004

REACTIONS (5)
  - Post transplant lymphoproliferative disorder [Fatal]
  - Febrile neutropenia [Recovered/Resolved]
  - Corynebacterium sepsis [Recovered/Resolved]
  - Cytomegalovirus test positive [Recovered/Resolved]
  - Hepatitis B antibody positive [Not Recovered/Not Resolved]
